FAERS Safety Report 25924245 (Version 3)
Quarter: 2025Q4

REPORT INFORMATION
  Report Type: Spontaneous
  Country: EU (occurrence: EU)
  Receive Date: 20251015
  Receipt Date: 20251118
  Transmission Date: 20260117
  Serious: Yes (Hospitalization, Disabling, Other)
  Sender: AMICUS THERAPEUTICS
  Company Number: EU-AMICUS THERAPEUTICS, INC.-AMI_4384

PATIENT
  Age: 71 Year
  Sex: Female

DRUGS (6)
  1. GALAFOLD [Suspect]
     Active Substance: MIGALASTAT HYDROCHLORIDE
     Indication: Fabry^s disease
     Dosage: 123 MILLIGRAM, QOD (EVERY TWO DAYS)
     Route: 048
     Dates: start: 2017
  2. LETROZOLE [Concomitant]
     Active Substance: LETROZOLE
     Indication: Product used for unknown indication
     Dosage: UNK, QD
     Route: 065
     Dates: start: 2020, end: 202411
  3. PERTUZUMAB\TRASTUZUMAB [Concomitant]
     Active Substance: PERTUZUMAB\TRASTUZUMAB
     Indication: Product used for unknown indication
     Dosage: UNK, ONCE EVERY 21 DAYS
     Route: 048
     Dates: start: 2024, end: 202411
  4. LEVOTHYROXINE [Concomitant]
     Active Substance: LEVOTHYROXINE
     Indication: Product used for unknown indication
     Dosage: 125 MICROGRAM, QD
     Route: 065
     Dates: start: 2011
  5. VALSARTAN [Concomitant]
     Active Substance: VALSARTAN
     Indication: Product used for unknown indication
     Dosage: 40 MILLIGRAM, QD
     Route: 065
     Dates: start: 2020
  6. NALOXONE HYDROCHLORIDE\OXYCODONE HYDROCHLORIDE [Concomitant]
     Active Substance: NALOXONE HYDROCHLORIDE\OXYCODONE HYDROCHLORIDE
     Indication: Product used for unknown indication
     Dosage: 20/10, QD
     Route: 065
     Dates: start: 2020

REACTIONS (2)
  - Cerebrovascular accident [Recovered/Resolved with Sequelae]
  - Oncologic complication [Unknown]

NARRATIVE: CASE EVENT DATE: 20241120
